FAERS Safety Report 15425076 (Version 1)
Quarter: 2018Q4

REPORT INFORMATION
  Report Type: Spontaneous
  Country: US (occurrence: US)
  Receive Date: 20180925
  Receipt Date: 20180925
  Transmission Date: 20190204
  Serious: No
  Sender: FDA-Public Use
  Company Number: US-THERAPEUTICSMD-2018TMD00114

PATIENT
  Age: 73 Year
  Sex: Female

DRUGS (2)
  1. IMVEXXY [Suspect]
     Active Substance: ESTRADIOL
     Indication: CYSTITIS
  2. IMVEXXY [Suspect]
     Active Substance: ESTRADIOL
     Indication: CYSTITIS
     Dosage: UNK IN THE MORNING
     Route: 067
     Dates: start: 201808

REACTIONS (2)
  - Vaginal discharge [Not Recovered/Not Resolved]
  - Off label use [Not Recovered/Not Resolved]

NARRATIVE: CASE EVENT DATE: 201808
